FAERS Safety Report 9868185 (Version 1)
Quarter: 2014Q1

REPORT INFORMATION
  Report Type: Spontaneous
  Country: GB (occurrence: GB)
  Receive Date: 20140204
  Receipt Date: 20140204
  Transmission Date: 20141002
  Serious: Yes (Other)
  Sender: FDA-Public Use
  Company Number: PHHY2014GB009701

PATIENT
  Age: 56 Year
  Sex: Female

DRUGS (1)
  1. CIPROFLOXACIN [Suspect]
     Indication: URINARY TRACT INFECTION
     Route: 048
     Dates: start: 20140116, end: 20140117

REACTIONS (3)
  - Abdominal distension [Recovering/Resolving]
  - Chest pain [Recovering/Resolving]
  - Urticaria [Recovering/Resolving]
